FAERS Safety Report 5885292-4 (Version None)
Quarter: 2008Q3

REPORT INFORMATION
  Report Type: 
  Country: None (occurrence: None)
  Receive Date: 20080915
  Receipt Date: 20080915
  Transmission Date: 20090109
  Serious: No
  Sender: FDA-Public Use
  Company Number: None

PATIENT
  Age: 63 Year
  Sex: Female
  Weight: 70.3075 kg

DRUGS (1)
  1. RITUXAN [Suspect]

REACTIONS (3)
  - CEREBROVASCULAR ACCIDENT [None]
  - PROGRESSIVE MULTIFOCAL LEUKOENCEPHALOPATHY [None]
  - WHITE BLOOD CELL COUNT DECREASED [None]
